FAERS Safety Report 9263936 (Version 1)
Quarter: 2013Q2

REPORT INFORMATION
  Report Type: Spontaneous
  Country: DE (occurrence: DE)
  Receive Date: 20130430
  Receipt Date: 20130430
  Transmission Date: 20140414
  Serious: Yes (Life-Threatening)
  Sender: FDA-Public Use
  Company Number: DE-B.I. PHARMACEUTICALS,INC./RIDGEFIELD-2013-DE-01211DE

PATIENT
  Sex: Male

DRUGS (2)
  1. PRADAXA [Suspect]
     Indication: ATRIAL FIBRILLATION
     Dosage: 220 NR
     Dates: start: 20121004, end: 20130412
  2. PRADAXA [Suspect]
     Indication: CEREBROVASCULAR ACCIDENT

REACTIONS (1)
  - Cerebrovascular accident [Unknown]
